FAERS Safety Report 25647983 (Version 1)
Quarter: 2025Q3

REPORT INFORMATION
  Report Type: Report from Study
  Country: US (occurrence: US)
  Receive Date: 20250806
  Receipt Date: 20250806
  Transmission Date: 20251021
  Serious: Yes (Other)
  Sender: ALEXION PHARMACEUTICALS
  Company Number: US-AstraZeneca-CH-00924095A

PATIENT
  Sex: Male

DRUGS (1)
  1. DAPAGLIFLOZIN [Suspect]
     Active Substance: DAPAGLIFLOZIN
     Route: 065

REACTIONS (14)
  - Type 2 diabetes mellitus [Unknown]
  - Immunodeficiency [Unknown]
  - Cardiac failure congestive [Unknown]
  - Obesity [Unknown]
  - Hypertension [Unknown]
  - Hyperlipidaemia [Unknown]
  - Coronary artery disease [Unknown]
  - Urinary incontinence [Unknown]
  - Nicotine dependence [Unknown]
  - Bronchitis chronic [Unknown]
  - Arteriosclerosis [Unknown]
  - Dermal cyst [Unknown]
  - Blister [Unknown]
  - Aortic valve stenosis [Unknown]
